FAERS Safety Report 5828067-4 (Version None)
Quarter: 2008Q3

REPORT INFORMATION
  Report Type: 
  Country: None (occurrence: None)
  Receive Date: 20080730
  Receipt Date: 20080502
  Transmission Date: 20090109
  Serious: No
  Sender: FDA-Public Use
  Company Number: A0727079A

PATIENT
  Age: 68 Year
  Sex: Male

DRUGS (4)
  1. RANITIDINE HCL [Suspect]
     Indication: DRUG USE FOR UNKNOWN INDICATION
  2. ASPIRIN [Concomitant]
  3. TOPROL-XL [Concomitant]
  4. PRINZIDE [Concomitant]

REACTIONS (1)
  - DRUG EFFECT DECREASED [None]
